FAERS Safety Report 17776462 (Version 2)
Quarter: 2022Q2

REPORT INFORMATION
  Report Type: Other
  Country: CA (occurrence: CA)
  Receive Date: 20200513
  Receipt Date: 20220420
  Transmission Date: 20220721
  Serious: Yes (Hospitalization, Other)
  Sender: FDA-Public Use
  Company Number: CA-APOTEX-2020AP010677

PATIENT
  Age: 74 Year
  Sex: Male

DRUGS (16)
  1. METOPROLOL [Suspect]
     Active Substance: METOPROLOL
     Indication: Product used for unknown indication
     Dosage: 50 MG, BID
     Route: 065
  2. METFORMIN [Suspect]
     Active Substance: METFORMIN HYDROCHLORIDE
     Indication: Hypersensitivity
     Dosage: 500 MG, BID
     Route: 048
  3. METFORMIN [Suspect]
     Active Substance: METFORMIN HYDROCHLORIDE
     Indication: Diabetes mellitus
     Dosage: 500 MG, QID
     Route: 065
  4. METFORMIN [Suspect]
     Active Substance: METFORMIN HYDROCHLORIDE
     Indication: Blood glucose increased
  5. SANDOSTATIN LAR DEPOT [Suspect]
     Active Substance: OCTREOTIDE ACETATE
     Indication: Malignant neoplasm of thymus
     Dosage: 20 MG, Q.M.T.
     Route: 030
  6. ALENDRONATE SODIUM [Concomitant]
     Active Substance: ALENDRONATE SODIUM
     Indication: Bone disorder
     Dosage: 70 MG, Q.WK.
     Route: 065
  7. LANSOPRAZOLE [Concomitant]
     Active Substance: LANSOPRAZOLE
     Indication: Product used for unknown indication
     Dosage: 30 MG, QD
     Route: 048
  8. PREDNISONE [Concomitant]
     Active Substance: PREDNISONE
     Indication: Product used for unknown indication
     Dosage: 4 DF, UNK
     Route: 065
  9. PREDNISONE [Concomitant]
     Active Substance: PREDNISONE
     Dosage: 5 MILLIGRAM
     Route: 048
  10. ROSUVASTATIN CALCIUM [Concomitant]
     Active Substance: ROSUVASTATIN CALCIUM
     Indication: Product used for unknown indication
     Dosage: 10 MG, QD
     Route: 048
  11. SODIUM BICARBONATE [Concomitant]
     Active Substance: SODIUM BICARBONATE
     Indication: Product used for unknown indication
     Dosage: 500 MILLIGRAM, BID
     Route: 048
  12. FOSAMAX [Concomitant]
     Active Substance: ALENDRONATE SODIUM
     Indication: Product used for unknown indication
     Dosage: 70 MILLIGRAM, Q.WK.
     Route: 048
  13. LATANOPROST [Concomitant]
     Active Substance: LATANOPROST
     Indication: Product used for unknown indication
     Dosage: 50 MICROGRAM
     Route: 047
  14. RAMIPRIL [Concomitant]
     Active Substance: RAMIPRIL
     Indication: Product used for unknown indication
     Dosage: 6 MILLIGRAM, QD
     Route: 065
  15. ROSUVASTATIN CALCIUM [Concomitant]
     Active Substance: ROSUVASTATIN CALCIUM
     Indication: Product used for unknown indication
     Dosage: 10 MILLIGRAM, QD
     Route: 048
  16. XARELTO [Concomitant]
     Active Substance: RIVAROXABAN
     Indication: Product used for unknown indication
     Dosage: 1 DOSAGE FORM, QD
     Route: 048

REACTIONS (44)
  - Arthralgia [Unknown]
  - Atrial fibrillation [Unknown]
  - Back pain [Unknown]
  - Blood pressure fluctuation [Unknown]
  - Blood pressure increased [Unknown]
  - Blood urine present [Unknown]
  - Body temperature decreased [Unknown]
  - Bronchitis [Unknown]
  - Cholelithiasis [Unknown]
  - Colitis [Unknown]
  - Discomfort [Unknown]
  - Fall [Unknown]
  - Haemorrhage urinary tract [Unknown]
  - Heart rate increased [Unknown]
  - Intestinal ischaemia [Unknown]
  - Irritability [Unknown]
  - Malignant neoplasm of thymus [Unknown]
  - Malignant neoplasm progression [Unknown]
  - Pain [Unknown]
  - Pallor [Unknown]
  - Product use in unapproved indication [Unknown]
  - Productive cough [Unknown]
  - Skin laceration [Unknown]
  - Thyroid function test abnormal [Unknown]
  - Weight decreased [Unknown]
  - Wheezing [Unknown]
  - Arthritis [Unknown]
  - Contusion [Unknown]
  - Blood glucose increased [Unknown]
  - Abdominal distension [Unknown]
  - Asthenia [Unknown]
  - Basal cell carcinoma [Unknown]
  - Blood iron decreased [Unknown]
  - Glaucoma [Unknown]
  - Haemoptysis [Unknown]
  - Hypoglycaemia [Unknown]
  - Increased appetite [Unknown]
  - Intestinal obstruction [Unknown]
  - Intestinal stenosis [Unknown]
  - Second primary malignancy [Unknown]
  - Sepsis [Unknown]
  - Skin lesion [Unknown]
  - Blood pressure decreased [Unknown]
  - Blood pressure systolic decreased [Unknown]
